FAERS Safety Report 15233814 (Version 1)
Quarter: 2018Q3

REPORT INFORMATION
  Report Type: Spontaneous
  Country: DE (occurrence: DE)
  Receive Date: 20180802
  Receipt Date: 20180802
  Transmission Date: 20181010
  Serious: Yes (Hospitalization, Other)
  Sender: FDA-Public Use
  Company Number: PHHY2018DE062035

PATIENT
  Sex: Female
  Weight: 120 kg

DRUGS (3)
  1. MINIRIN [Interacting]
     Active Substance: DESMOPRESSIN ACETATE
     Dosage: 100 MG, QD (DIE ERSTEN 2 TAGE 100MG/D)
     Route: 065
     Dates: start: 2018
  2. MINIRIN [Interacting]
     Active Substance: DESMOPRESSIN ACETATE
     Indication: PRODUCT USED FOR UNKNOWN INDICATION
     Dosage: 50 MG, QD (AM 3. TAG 50MG/D)
     Route: 065
     Dates: start: 2018
  3. BISOPROLOL [Suspect]
     Active Substance: BISOPROLOL
     Indication: TACHYCARDIA
     Dosage: 1.25 MG, QD
     Route: 065

REACTIONS (1)
  - Bradycardia [Unknown]

NARRATIVE: CASE EVENT DATE: 2018
